FAERS Safety Report 18746351 (Version 1)
Quarter: 2021Q1

REPORT INFORMATION
  Report Type: Spontaneous
  Country: CA (occurrence: CA)
  Receive Date: 20210115
  Receipt Date: 20210115
  Transmission Date: 20210419
  Serious: Yes (Other)
  Sender: FDA-Public Use
  Company Number: CA-PFIZER INC-2021021561

PATIENT
  Age: 61 Year
  Sex: Male

DRUGS (9)
  1. TAMSULOSIN [Concomitant]
     Active Substance: TAMSULOSIN
     Dosage: UNK
  2. CRESTOR [Concomitant]
     Active Substance: ROSUVASTATIN CALCIUM
     Dosage: UNK
  3. XELJANZ [Suspect]
     Active Substance: TOFACITINIB CITRATE
     Indication: PSORIATIC ARTHROPATHY
     Dosage: 5 MG, 2X/DAY
     Route: 048
  4. METHOTREXATE. [Concomitant]
     Active Substance: METHOTREXATE
     Dosage: 25 MG, WEEKLY
     Route: 058
     Dates: start: 201709
  5. LEFLUNOMIDE. [Concomitant]
     Active Substance: LEFLUNOMIDE
     Dosage: UNK
     Route: 065
  6. NEXIUM I.V. [Concomitant]
     Active Substance: ESOMEPRAZOLE SODIUM
     Dosage: UNK
  7. FOLIC ACID. [Concomitant]
     Active Substance: FOLIC ACID
     Dosage: UNK
     Route: 065
  8. PLAQUENIL [Concomitant]
     Active Substance: HYDROXYCHLOROQUINE SULFATE
     Dosage: UNK
     Route: 065
  9. SUBLINOX [Concomitant]
     Active Substance: ZOLPIDEM TARTRATE
     Dosage: UNK

REACTIONS (5)
  - Tendonitis [Unknown]
  - Back pain [Unknown]
  - Non-alcoholic steatohepatitis [Unknown]
  - Arthralgia [Unknown]
  - Dactylitis [Unknown]

NARRATIVE: CASE EVENT DATE: 2020
